FAERS Safety Report 6543423-7 (Version None)
Quarter: 2010Q1

REPORT INFORMATION
  Report Type: 
  Country: None (occurrence: None)
  Receive Date: 20100114
  Receipt Date: 20090928
  Transmission Date: 20100710
  Serious: Yes (Other)
  Sender: FDA-Public Use
  Company Number: AE 2009-127

PATIENT
  Sex: Female

DRUGS (1)
  1. ELESTRIN [Suspect]
     Dosage: 2 PUMPS DAILY TOPICALLY
     Route: 061
     Dates: start: 20090904

REACTIONS (2)
  - BREAST CANCER [None]
  - BREAST DISCOLOURATION [None]
